FAERS Safety Report 9848210 (Version 1)
Quarter: 2014Q1

REPORT INFORMATION
  Report Type: Spontaneous
  Country: US (occurrence: None)
  Receive Date: 20140127
  Receipt Date: 20140127
  Transmission Date: 20141002
  Serious: Yes (Other)
  Sender: FDA-Public Use
  Company Number: None

PATIENT
  Age: 57 Year
  Sex: Female

DRUGS (4)
  1. LIDOCAINE PATCH [Suspect]
     Indication: BACK PAIN
     Dosage: ON LOWER BACK.
     Dates: start: 20130915, end: 20140106
  2. ARMOUR THYROID [Concomitant]
  3. FIBER CAPSULES [Concomitant]
  4. MULTI VITAMINS [Concomitant]

REACTIONS (3)
  - Product quality issue [None]
  - Drug ineffective [None]
  - Product substitution issue [None]
